FAERS Safety Report 7374754-9 (Version None)
Quarter: 2011Q1

REPORT INFORMATION
  Report Type: 
  Country: None (occurrence: None)
  Receive Date: 20110325
  Receipt Date: 20101228
  Transmission Date: 20110831
  Serious: No
  Sender: FDA-Public Use
  Company Number: US-MYLANLABS-2010S1018952

PATIENT
  Age: 6 Decade
  Sex: Male

DRUGS (12)
  1. FENTANYL-100 [Suspect]
     Indication: NERVE INJURY
     Route: 062
     Dates: start: 20070101, end: 20080101
  2. FENTANYL-100 [Suspect]
     Dosage: CHANGED Q72H THEN Q48H
     Route: 062
     Dates: start: 20080101
  3. FENTANYL-100 [Suspect]
     Indication: PAIN
     Route: 062
     Dates: start: 20070101, end: 20080101
  4. FENTANYL-100 [Suspect]
     Dosage: CHANGED Q72H THEN Q48H
     Route: 062
     Dates: start: 20080101
  5. FENTANYL-100 [Suspect]
     Dosage: CHANGED Q72H THEN Q48H
     Route: 062
     Dates: start: 20080101
  6. STOOL SOFTENER [Concomitant]
     Dosage: TWO A DAY
  7. EXLAX /00221401/ [Concomitant]
     Dosage: TWO AT BEDTIME
  8. FENTANYL-100 [Suspect]
     Dosage: CHANGED Q72H THEN Q48H
     Route: 062
     Dates: start: 20080101
  9. FENTANYL-100 [Suspect]
     Dosage: CHANGED Q72H THEN Q48H
     Route: 062
     Dates: start: 20080101
  10. FENTANYL-100 [Suspect]
     Dosage: CHANGED Q72H THEN Q48H
     Route: 062
     Dates: start: 20080101
  11. ASPIRIN [Concomitant]
  12. FENTANYL-100 [Suspect]
     Indication: BONE DISORDER
     Route: 062
     Dates: start: 20070101, end: 20080101

REACTIONS (8)
  - APPLICATION SITE ERYTHEMA [None]
  - DYSKINESIA [None]
  - EUPHORIC MOOD [None]
  - PAIN [None]
  - CONFUSIONAL STATE [None]
  - APPLICATION SITE DISCOLOURATION [None]
  - ANGER [None]
  - DRUG INEFFECTIVE [None]
